FAERS Safety Report 6795054-1 (Version None)
Quarter: 2010Q2

REPORT INFORMATION
  Report Type: 
  Country: None (occurrence: None)
  Receive Date: 20100625
  Receipt Date: 20100615
  Transmission Date: 20101027
  Serious: Yes (Hospitalization, Other)
  Sender: FDA-Public Use
  Company Number: PHHY2010JP39509

PATIENT
  Sex: Male
  Weight: 45 kg

DRUGS (10)
  1. ICL670A ICL+DISTAB [Suspect]
     Indication: APLASTIC ANAEMIA
     Dosage: 875 MG/DAY
     Route: 048
     Dates: start: 20090710, end: 20090806
  2. ICL670A ICL+DISTAB [Suspect]
     Indication: IRON OVERLOAD
     Dosage: 875 MG/DAY
     Route: 048
     Dates: start: 20090930, end: 20091015
  3. ICL670A ICL+DISTAB [Suspect]
     Dosage: 250 MG/DAY
     Route: 048
     Dates: start: 20091204, end: 20091218
  4. ROCALTROL [Concomitant]
     Dosage: 3 DF, UNK
     Route: 048
     Dates: start: 20090706
  5. DIGOSIN [Concomitant]
     Dosage: 0.5 DF, UNK
     Route: 048
  6. LASIX [Concomitant]
     Dosage: 0.5 DF, UNK
     Route: 048
     Dates: end: 20091025
  7. UROCALUN [Concomitant]
     Dosage: 6 DF, UNK
     Route: 048
     Dates: end: 20091206
  8. LIVACT [Concomitant]
     Dosage: 2 DF, UNK
     Route: 048
  9. PREDONINE [Concomitant]
     Dosage: 1 DF, UNK
     Route: 048
     Dates: end: 20091206
  10. RED BLOOD CELLS [Concomitant]
     Dosage: 2 UNITS EVERY THREE WEEKS
     Dates: end: 20090828

REACTIONS (3)
  - ALTERED STATE OF CONSCIOUSNESS [None]
  - RENAL DISORDER [None]
  - RENAL IMPAIRMENT [None]
